FAERS Safety Report 4693670-4 (Version None)
Quarter: 2005Q2

REPORT INFORMATION
  Report Type: 
  Country: None (occurrence: None)
  Receive Date: 20050615
  Receipt Date: 20050602
  Transmission Date: 20051028
  Serious: Yes (Hospitalization, Other)
  Sender: FDA-Public Use
  Company Number: 2005083998

PATIENT
  Age: 73 Year
  Sex: Male
  Weight: 90.7194 kg

DRUGS (4)
  1. VIAGRA [Suspect]
     Indication: ERECTILE DYSFUNCTION
     Dosage: 100 MG, ORAL
     Route: 048
     Dates: start: 19980101
  2. ASPIRIN W/CAFFEINE (ACETYLSALICYLIC ACID, CAFFEINE) [Concomitant]
  3. ACETAMINOPHEN [Concomitant]
  4. VITAMINS (VITAMINS) [Concomitant]

REACTIONS (3)
  - HIP ARTHROPLASTY [None]
  - JOINT SWELLING [None]
  - OEDEMA PERIPHERAL [None]
